FAERS Safety Report 21689581 (Version 2)
Quarter: 2023Q1

REPORT INFORMATION
  Report Type: Spontaneous
  Country: CH (occurrence: AT)
  Receive Date: 20221206
  Receipt Date: 20230227
  Transmission Date: 20230418
  Serious: Yes (Other)
  Sender: FDA-Public Use
  Company Number: CH-BRISTOL-MYERS SQUIBB COMPANY-2022-144148

PATIENT

DRUGS (6)
  1. OPDIVO [Suspect]
     Active Substance: NIVOLUMAB
     Indication: Metastatic malignant melanoma
     Dosage: DOSE : UNAVAILABLE;     FREQ : UNAVAILABLE
  2. OPDIVO [Suspect]
     Active Substance: NIVOLUMAB
     Dosage: DOSE: 240MG/24ML
     Dates: start: 20220725
  3. OPDIVO [Suspect]
     Active Substance: NIVOLUMAB
     Dosage: DOSE: 240MG/24ML
     Dates: start: 20220808
  4. OPDIVO [Suspect]
     Active Substance: NIVOLUMAB
     Dosage: DOSE: 240MG/24ML
     Dates: start: 20220822
  5. IPILIMUMAB [Suspect]
     Active Substance: IPILIMUMAB
     Indication: Metastatic malignant melanoma
  6. NINLARO [Concomitant]
     Active Substance: IXAZOMIB CITRATE
     Indication: Metastatic malignant melanoma

REACTIONS (6)
  - Colitis [Unknown]
  - Drug ineffective [Unknown]
  - Metastases to liver [Unknown]
  - Metastases to central nervous system [Unknown]
  - Epilepsy [Unknown]
  - Off label use [Unknown]

NARRATIVE: CASE EVENT DATE: 20220725
